FAERS Safety Report 10912887 (Version 5)
Quarter: 2015Q3

REPORT INFORMATION
  Report Type: Spontaneous
  Country: US (occurrence: None)
  Receive Date: 20150310
  Receipt Date: 20150901
  Transmission Date: 20151125
  Serious: Yes (Other)
  Sender: FDA-Public Use
  Company Number: US-001571

PATIENT
  Sex: Female

DRUGS (7)
  1. DIGOXIN. [Concomitant]
     Active Substance: DIGOXIN
  2. GATTEX [Suspect]
     Active Substance: TEDUGLUTIDE\WATER
     Indication: SHORT-BOWEL SYNDROME
     Dosage: (DF SUBCUTANEOUS)
     Route: 058
     Dates: start: 2015
  3. OXYCODONE [Concomitant]
     Active Substance: OXYCODONE
  4. TUDORZA PRESSAIR [Concomitant]
     Active Substance: ACLIDINIUM BROMIDE
  5. PEPCID [Concomitant]
     Active Substance: FAMOTIDINE
  6. LEVOTHYROXIN [Concomitant]
     Active Substance: LEVOTHYROXINE
  7. SOLUTIONS FOR PARENTERAL NUTRITION [Concomitant]
     Active Substance: AMINO ACIDS\DEXTROSE\ELECTROLYTES NOS

REACTIONS (14)
  - Flushing [None]
  - Rash [None]
  - Abdominal pain [None]
  - Urticaria [None]
  - Diarrhoea [None]
  - Bowel movement irregularity [None]
  - Nausea [None]
  - Intestinal obstruction [None]
  - Drug dose omission [None]
  - Abdominal pain upper [None]
  - Headache [None]
  - Renal disorder [None]
  - Abdominal distension [None]
  - Decreased appetite [None]
